FAERS Safety Report 20229397 (Version 1)
Quarter: 2021Q4

REPORT INFORMATION
  Report Type: Report from Study
  Country: JP (occurrence: JP)
  Receive Date: 20211225
  Receipt Date: 20211225
  Transmission Date: 20220303
  Serious: Yes (Life-Threatening)
  Sender: FDA-Public Use
  Company Number: JP-NOVARTISPH-NVSC2021JP295045

PATIENT
  Sex: Male

DRUGS (6)
  1. RECLAST [Suspect]
     Active Substance: ZOLEDRONIC ACID
     Indication: Osteoporosis
     Dosage: 5 MG, Q12MO (5 MG/YEAR)
     Route: 041
     Dates: start: 20180426, end: 20180426
  2. RECLAST [Suspect]
     Active Substance: ZOLEDRONIC ACID
     Dosage: 5 MG, Q12MO (5 MG/YEAR)
     Route: 041
     Dates: start: 20190425, end: 20190425
  3. RECLAST [Suspect]
     Active Substance: ZOLEDRONIC ACID
     Dosage: 5 MG, Q12MO (5 MG/YEAR)
     Route: 041
     Dates: start: 20200521, end: 20200521
  4. ELDECALCITOL [Concomitant]
     Active Substance: ELDECALCITOL
     Indication: Product used for unknown indication
     Dosage: UNK
     Route: 048
     Dates: start: 20201125
  5. LEVOTHYROXINE [Concomitant]
     Active Substance: LEVOTHYROXINE
     Indication: Product used for unknown indication
     Dosage: UNK (DRIED THYROID)
     Route: 048
  6. NOVORAPID [Concomitant]
     Active Substance: INSULIN ASPART
     Indication: Product used for unknown indication
     Dosage: UNK
     Route: 041

REACTIONS (1)
  - Lung cancer metastatic [Unknown]

NARRATIVE: CASE EVENT DATE: 20201125
